FAERS Safety Report 5130523-1 (Version None)
Quarter: 2006Q4

REPORT INFORMATION
  Report Type: 
  Country: None (occurrence: None)
  Receive Date: 20061019
  Receipt Date: 20061011
  Transmission Date: 20070319
  Serious: Yes (Hospitalization)
  Sender: FDA-Public Use
  Company Number: GB-GLAXOSMITHKLINE-B0441716A

PATIENT
  Sex: Female

DRUGS (2)
  1. NIQUITIN CQ 21MG [Suspect]
     Route: 062
  2. NIQUITIN CQ 14MG [Suspect]
     Route: 062

REACTIONS (9)
  - ABDOMINAL PAIN UPPER [None]
  - CONSTIPATION [None]
  - DEPRESSED MOOD [None]
  - FEELING ABNORMAL [None]
  - HYPERTENSION [None]
  - INTESTINAL OBSTRUCTION [None]
  - NAUSEA [None]
  - RASH [None]
  - URINARY TRACT INFECTION [None]
